FAERS Safety Report 9730368 (Version 1)
Quarter: 2013Q4

REPORT INFORMATION
  Report Type: Report from Study
  Country: ID (occurrence: ID)
  Receive Date: 20131204
  Receipt Date: 20131204
  Transmission Date: 20140711
  Serious: Yes (Other)
  Sender: FDA-Public Use
  Company Number: ID-ROCHE-1313842

PATIENT
  Age: 35 Year
  Sex: Female
  Weight: 80 kg

DRUGS (1)
  1. XENICAL [Suspect]
     Indication: OBESITY
     Route: 048

REACTIONS (1)
  - Hypotension [Unknown]
